FAERS Safety Report 7600636-0 (Version None)
Quarter: 2011Q3

REPORT INFORMATION
  Report Type: 
  Country: None (occurrence: None)
  Receive Date: 20110711
  Receipt Date: 20110630
  Transmission Date: 20111222
  Serious: Yes (Other)
  Sender: FDA-Public Use
  Company Number: US-ASTRAZENECA-2011SE39643

PATIENT
  Age: 72 Year
  Sex: Male

DRUGS (2)
  1. WARFARIN SODIUM [Concomitant]
     Route: 048
  2. VIMOVO [Suspect]
     Indication: ARTHRITIS
     Dosage: 1 BID
     Route: 048

REACTIONS (1)
  - MUSCLE RUPTURE [None]
